FAERS Safety Report 6688811-3 (Version None)
Quarter: 2010Q2

REPORT INFORMATION
  Report Type: 
  Country: None (occurrence: None)
  Receive Date: 20100420
  Receipt Date: 20100409
  Transmission Date: 20101027
  Serious: Yes (Hospitalization)
  Sender: FDA-Public Use
  Company Number: US-BRISTOL-MYERS SQUIBB COMPANY-15067317

PATIENT
  Age: 57 Year
  Sex: Male
  Weight: 64 kg

DRUGS (3)
  1. CETUXIMAB [Suspect]
     Indication: NON-SMALL CELL LUNG CANCER
     Dosage: DOSAGE:712MG,1 IN 3 WEEK.
     Route: 042
     Dates: start: 20100330, end: 20100330
  2. PACLITAXEL [Suspect]
     Indication: NON-SMALL CELL LUNG CANCER
     Dosage: DOSAGE:356 MG, 1 IN 3 WEEK.
     Route: 042
     Dates: start: 20100330, end: 20100330
  3. CARBOPLATIN [Suspect]
     Indication: NON-SMALL CELL LUNG CANCER
     Dosage: DOSAGE:918 MG 1 IN 3 WEEK.
     Route: 042
     Dates: start: 20100330, end: 20100330

REACTIONS (1)
  - ILEUS [None]
